FAERS Safety Report 21718259 (Version 1)
Quarter: 2022Q4

REPORT INFORMATION
  Report Type: Spontaneous
  Country: US (occurrence: US)
  Receive Date: 20221212
  Receipt Date: 20221212
  Transmission Date: 20230113
  Serious: No
  Sender: FDA-Public Use
  Company Number: US-SA-SAC20221209000514

PATIENT
  Sex: Female
  Weight: 100 kg

DRUGS (3)
  1. KEVZARA [Suspect]
     Active Substance: SARILUMAB
     Indication: Psoriasis
     Dosage: 200 MG, QOW
     Route: 058
  2. GEMTESA [Concomitant]
     Active Substance: VIBEGRON
  3. MYRBETRIQ [Concomitant]
     Active Substance: MIRABEGRON

REACTIONS (5)
  - Injection site erythema [Unknown]
  - Injection site pruritus [Unknown]
  - Injection site swelling [Unknown]
  - Drug ineffective [Unknown]
  - Product use in unapproved indication [Unknown]
